FAERS Safety Report 12096148 (Version 2)
Quarter: 2016Q1

REPORT INFORMATION
  Report Type: Spontaneous
  Country: US (occurrence: US)
  Receive Date: 20160220
  Receipt Date: 20160319
  Transmission Date: 20160526
  Serious: Yes (Other)
  Sender: FDA-Public Use
  Company Number: US-AUROBINDO-AUR-APL-2016-01610

PATIENT
  Age: 26 Year
  Sex: Female

DRUGS (4)
  1. EPINEPHRINE. [Concomitant]
     Active Substance: EPINEPHRINE
     Indication: ANAESTHESIA
     Route: 065
  2. MIDAZOLAM [Concomitant]
     Active Substance: MIDAZOLAM\MIDAZOLAM HYDROCHLORIDE
     Indication: SEIZURE
     Dosage: 2 MG, UNK
     Route: 065
  3. LIDOCAINE. [Suspect]
     Active Substance: LIDOCAINE
     Indication: ANAESTHESIA
     Dosage: 25 CC OF 2%
     Route: 065
  4. CHLOROPROCAINE [Suspect]
     Active Substance: CHLOROPROCAINE
     Indication: ANAESTHESIA
     Dosage: 10 CC OF 3%
     Route: 065

REACTIONS (5)
  - Vision blurred [Recovered/Resolved]
  - Hypoaesthesia oral [Recovered/Resolved]
  - Toxicity to various agents [Recovered/Resolved]
  - Anxiety [Recovered/Resolved]
  - Dyspnoea [Recovered/Resolved]
